FAERS Safety Report 8123638-7 (Version None)
Quarter: 2012Q1

REPORT INFORMATION
  Report Type: 
  Country: None (occurrence: None)
  Receive Date: 20120208
  Receipt Date: 20120206
  Transmission Date: 20120608
  Serious: Yes (Other)
  Sender: FDA-Public Use
  Company Number: PHEH2012US001234

PATIENT
  Sex: Female
  Weight: 65.4 kg

DRUGS (1)
  1. AFINITOR [Suspect]
     Indication: MALIGNANT NEOPLASM OF ISLETS OF LANGERHANS
     Dosage: 10 MG, QD
     Route: 048
     Dates: start: 20111001

REACTIONS (6)
  - PULMONARY CONGESTION [None]
  - PYREXIA [None]
  - SINUS HEADACHE [None]
  - INFLUENZA [None]
  - COUGH [None]
  - HEADACHE [None]
